FAERS Safety Report 13334020 (Version 1)
Quarter: 2017Q1

REPORT INFORMATION
  Report Type: Spontaneous
  Country: RO (occurrence: RO)
  Receive Date: 20170313
  Receipt Date: 20170313
  Transmission Date: 20170428
  Serious: Yes (Life-Threatening)
  Sender: FDA-Public Use
  Company Number: PHHY2017RO031254

PATIENT
  Age: 59 Year
  Sex: Female
  Weight: 90 kg

DRUGS (2)
  1. AZITROMICIN SANDOZ [Suspect]
     Active Substance: AZITHROMYCIN
     Indication: BRONCHITIS
     Dosage: 500 MG, QD
     Route: 048
     Dates: start: 20170213, end: 20170214
  2. FENSPIRIDE [Concomitant]
     Active Substance: FENSPIRIDE
     Indication: PRODUCT USED FOR UNKNOWN INDICATION
     Route: 065

REACTIONS (5)
  - Respiratory failure [Recovered/Resolved]
  - Cheilitis [Recovered/Resolved]
  - Dysphagia [Recovered/Resolved]
  - Dyspnoea [Recovered/Resolved]
  - Pharyngeal inflammation [Recovered/Resolved]

NARRATIVE: CASE EVENT DATE: 20170214
